FAERS Safety Report 5068345-2 (Version None)
Quarter: 2006Q3

REPORT INFORMATION
  Report Type: 
  Country: None (occurrence: None)
  Receive Date: 20060802
  Receipt Date: 20050810
  Transmission Date: 20061208
  Serious: No
  Sender: FDA-Public Use
  Company Number: US-BRISTOL-MYERS SQUIBB COMPANY-13071865

PATIENT
  Age: 56 Year
  Sex: Male
  Weight: 113 kg

DRUGS (5)
  1. COUMADIN [Suspect]
     Indication: ATRIAL FIBRILLATION
     Dosage: THERAPY HELD 8/7-8/8/2005
     Dates: start: 20050729
  2. GLUCOPHAGE [Concomitant]
  3. AVANDIA [Concomitant]
  4. PERCOCET [Concomitant]
  5. TOPROL-XL [Concomitant]

REACTIONS (1)
  - INTERNATIONAL NORMALISED RATIO INCREASED [None]
